FAERS Safety Report 4337214-5 (Version None)
Quarter: 2004Q2

REPORT INFORMATION
  Report Type: 
  Country: None (occurrence: None)
  Receive Date: 20040401
  Receipt Date: 20031121
  Transmission Date: 20050107
  Serious: Yes (Other)
  Sender: FDA-Public Use
  Company Number: PHEH2003US10782

PATIENT
  Age: 69 Year
  Sex: Female
  Weight: 63.9 kg

DRUGS (7)
  1. VIVELLE-DOT [Suspect]
     Indication: HORMONE REPLACEMENT THERAPY
     Dosage: 0.05 MG, TWICE WEEKLY, TRANSDERMAL
     Route: 062
     Dates: start: 19930101, end: 20031001
  2. LIPITOR [Concomitant]
  3. HYZAAR [Concomitant]
  4. CORGARD [Concomitant]
  5. CALCIUM [Concomitant]
  6. CENTRUM SILVER (ZINC, VITAMINS NOS, VITAMIN B NOS, RETINOL) [Concomitant]
  7. CALCIUM W/MAGNESIUM [Concomitant]

REACTIONS (4)
  - ARTHRALGIA [None]
  - BLOOD PRESSURE INCREASED [None]
  - PULSE ABNORMAL [None]
  - RASH [None]
